FAERS Safety Report 4853159-6 (Version None)
Quarter: 2005Q4

REPORT INFORMATION
  Report Type: 
  Country: None (occurrence: None)
  Receive Date: 20051212
  Receipt Date: 20051207
  Transmission Date: 20060501
  Serious: Yes (Hospitalization, Other)
  Sender: FDA-Public Use
  Company Number: 2005-11-0085

PATIENT
  Age: 6 Year
  Sex: Male
  Weight: 22.6799 kg

DRUGS (2)
  1. CLARITIN [Suspect]
     Indication: NASAL CONGESTION
     Dosage: 2 TSP ORAL
     Route: 048
     Dates: start: 20051101, end: 20051101
  2. CLARITIN [Suspect]
     Indication: RHINORRHOEA
     Dosage: 2 TSP ORAL
     Route: 048
     Dates: start: 20051101, end: 20051101

REACTIONS (11)
  - CRYING [None]
  - FOAMING AT MOUTH [None]
  - GRAND MAL CONVULSION [None]
  - LOSS OF CONSCIOUSNESS [None]
  - MUSCLE RIGIDITY [None]
  - RASH [None]
  - REFUSAL OF TREATMENT BY RELATIVE [None]
  - RETCHING [None]
  - SOMNOLENCE [None]
  - STUPOR [None]
  - TREMOR [None]
